FAERS Safety Report 5162466-1 (Version None)
Quarter: 2006Q4

REPORT INFORMATION
  Report Type: 
  Country: None (occurrence: None)
  Receive Date: 20061129
  Receipt Date: 20061129
  Transmission Date: 20070319
  Serious: Yes (Other)
  Sender: FDA-Public Use
  Company Number: None

PATIENT
  Age: 40 Year
  Sex: Male
  Weight: 102.0593 kg

DRUGS (1)
  1. SINGULAIR [Suspect]
     Indication: ASTHMA
     Dosage: 10MG QHS PO
     Route: 048
     Dates: start: 20060915, end: 20061015

REACTIONS (7)
  - ALLODYNIA [None]
  - CHEST PAIN [None]
  - COSTOCHONDRITIS [None]
  - HYPERSENSITIVITY [None]
  - HYPOAESTHESIA [None]
  - MYALGIA [None]
  - PAIN [None]
